FAERS Safety Report 8901526 (Version 1)
Quarter: 2012Q4

REPORT INFORMATION
  Report Type: 
  Country: GB (occurrence: GB)
  Receive Date: 20121109
  Receipt Date: 20121109
  Transmission Date: 20130627
  Serious: Yes (Hospitalization, Other)
  Sender: FDA-Public Use
  Company Number: GB-CELGENEUS-167-50794-12103696

PATIENT
  Sex: Male

DRUGS (1)
  1. VIDAZA [Suspect]
     Indication: MDS
     Route: 065

REACTIONS (3)
  - Infarction [Recovered/Resolved with Sequelae]
  - Haemorrhage [Recovered/Resolved with Sequelae]
  - Bradycardia [Recovered/Resolved with Sequelae]
